FAERS Safety Report 24300553 (Version 3)
Quarter: 2024Q4

REPORT INFORMATION
  Report Type: Spontaneous
  Country: AU (occurrence: AU)
  Receive Date: 20240910
  Receipt Date: 20241120
  Transmission Date: 20250115
  Serious: Yes (Other)
  Sender: NOVO NORDISK
  Company Number: AU-NOVOPROD-1277005

PATIENT
  Age: 55 Year
  Sex: Female
  Weight: 80.7 kg

DRUGS (42)
  1. OZEMPIC [Suspect]
     Active Substance: SEMAGLUTIDE
     Indication: Type 2 diabetes mellitus
     Dosage: 0.25 MG, QW
     Dates: start: 20220127
  2. OZEMPIC [Suspect]
     Active Substance: SEMAGLUTIDE
     Dosage: UNK
     Dates: end: 20231127
  3. OZEMPIC [Suspect]
     Active Substance: SEMAGLUTIDE
     Dosage: 1 MG, QW
  4. OZEMPIC [Suspect]
     Active Substance: SEMAGLUTIDE
     Dosage: 0.5 MG, QW
  5. ETHINYL ESTRADIOL\LEVONORGESTREL ACETATE [Concomitant]
     Active Substance: ETHINYL ESTRADIOL\LEVONORGESTREL ACETATE
     Dosage: 1 DAILY
     Dates: start: 20090925
  6. ETHINYL ESTRADIOL\LEVONORGESTREL ACETATE [Concomitant]
     Active Substance: ETHINYL ESTRADIOL\LEVONORGESTREL ACETATE
     Dosage: 1 DAILY
     Dates: start: 20070223
  7. ALPHAMOX [Concomitant]
     Dosage: 1 THREE TIMES A DAY WITH MEALS
     Dates: start: 20070516
  8. ALPHAMOX [Concomitant]
     Dosage: 1 THREE TIMES A DAY WITH MEALS
     Dates: start: 20080110
  9. LEVLEN [Concomitant]
     Active Substance: ETHINYL ESTRADIOL\LEVONORGESTREL
     Dosage: 1 DAILY AS DIRECTED
     Dates: start: 20110727
  10. LEVLEN [Concomitant]
     Active Substance: ETHINYL ESTRADIOL\LEVONORGESTREL
     Dosage: 1 DAILY AS DIRECTED
     Dates: start: 20150319
  11. LEVLEN [Concomitant]
     Active Substance: ETHINYL ESTRADIOL\LEVONORGESTREL
     Dosage: 1 DAILY AS DIRECTED
     Dates: start: 20140430
  12. LEVLEN [Concomitant]
     Active Substance: ETHINYL ESTRADIOL\LEVONORGESTREL
     Dosage: 1 DAILY AS DIRECTED
     Dates: start: 20130615
  13. LEVLEN [Concomitant]
     Active Substance: ETHINYL ESTRADIOL\LEVONORGESTREL
     Dosage: 1 DAILY AS DIRECTED
     Dates: start: 20120427
  14. LEVLEN [Concomitant]
     Active Substance: ETHINYL ESTRADIOL\LEVONORGESTREL
     Dosage: 1 DAILY AS DIRECTED
     Dates: start: 20100617
  15. LEVLEN [Concomitant]
     Active Substance: ETHINYL ESTRADIOL\LEVONORGESTREL
     Dosage: 1 DAILY AS DIRECTED
     Dates: start: 20150722
  16. DEPO-PROVERA [Concomitant]
     Active Substance: MEDROXYPROGESTERONE ACETATE
     Dosage: 1 INJECTION AS DIRECTED
     Dates: start: 20150319
  17. AMOXICILLIN [Concomitant]
     Active Substance: AMOXICILLIN
     Dosage: 1 CAPSULE THREE TIMES A DAY FOR 10 DAYS
     Dates: start: 20191209
  18. AMOXICILLIN [Concomitant]
     Active Substance: AMOXICILLIN
     Dosage: 1 CAPSULE THREE TIMES A DAY BEFORE MEALS
     Dates: start: 20161129
  19. AMOXICILLIN [Concomitant]
     Active Substance: AMOXICILLIN
     Dosage: 1 CAPSULE EVERY 8 HOURS
     Dates: start: 20230821
  20. AMOXICILLIN [Concomitant]
     Active Substance: AMOXICILLIN
     Dosage: 1 CAPSULE EVERY 8 HOURS
     Dates: start: 20230724
  21. CHLORAMPHENICOL [Concomitant]
     Active Substance: CHLORAMPHENICOL
     Dosage: 1 DROP DROP EVERY 6 HOURS FOR 5 DAYS
     Dates: start: 20191209
  22. METFORMIN [Concomitant]
     Active Substance: METFORMIN HYDROCHLORIDE
     Dosage: 1 TABLET BEFORE BED
     Dates: start: 20210618
  23. ROSUVASTATIN [Concomitant]
     Active Substance: ROSUVASTATIN
     Dosage: 1 TABLET BEFORE BED
     Dates: start: 20241014
  24. ROSUVASTATIN [Concomitant]
     Active Substance: ROSUVASTATIN
     Dosage: 1 TABLET BEFORE BED
     Dates: start: 20240621
  25. ROSUVASTATIN [Concomitant]
     Active Substance: ROSUVASTATIN
     Dosage: 1 TABLET BEFORE BED
     Dates: start: 20231127
  26. ROSUVASTATIN [Concomitant]
     Active Substance: ROSUVASTATIN
     Dosage: 1 TABLET BEFORE BED
     Dates: start: 20230515
  27. ROSUVASTATIN [Concomitant]
     Active Substance: ROSUVASTATIN
     Dosage: 1 TABLET BEFORE BED
     Dates: start: 20221124
  28. ROSUVASTATIN [Concomitant]
     Active Substance: ROSUVASTATIN
     Dosage: 1 TABLET BEFORE BED
     Dates: start: 20220510
  29. ROSUVASTATIN [Concomitant]
     Active Substance: ROSUVASTATIN
     Dosage: 1 TABLET BEFORE BED
     Dates: start: 20211130
  30. ROSUVASTATIN [Concomitant]
     Active Substance: ROSUVASTATIN
     Dosage: 1 TABLET BEFORE BED
     Dates: start: 20210618
  31. EMPAGLIFLOZIN\METFORMIN HYDROCHLORIDE [Concomitant]
     Active Substance: EMPAGLIFLOZIN\METFORMIN HYDROCHLORIDE
     Dosage: 1 TABLET TWICE A DAY
     Dates: start: 20240514
  32. EMPAGLIFLOZIN\METFORMIN HYDROCHLORIDE [Concomitant]
     Active Substance: EMPAGLIFLOZIN\METFORMIN HYDROCHLORIDE
     Dosage: 1 TABLET TWICE A DAY
     Dates: start: 20241014
  33. EMPAGLIFLOZIN\METFORMIN HYDROCHLORIDE [Concomitant]
     Active Substance: EMPAGLIFLOZIN\METFORMIN HYDROCHLORIDE
     Dosage: 1 TABLET DAILY
     Dates: start: 20230515
  34. EMPAGLIFLOZIN\METFORMIN HYDROCHLORIDE [Concomitant]
     Active Substance: EMPAGLIFLOZIN\METFORMIN HYDROCHLORIDE
     Dosage: 1 TABLET IN THE MORNING
     Dates: start: 20210723
  35. EMPAGLIFLOZIN\METFORMIN HYDROCHLORIDE [Concomitant]
     Active Substance: EMPAGLIFLOZIN\METFORMIN HYDROCHLORIDE
     Dosage: 1 TABLET DAILY
     Dates: start: 20220510
  36. BOOSTRIX [Concomitant]
     Active Substance: TETANUS TOXOID, REDUCED DIPHTHERIA TOXOID AND ACELLULAR PERTUSSIS VACCINE, ADSORBED ANTIGENS
     Dosage: SYRINGE IMI PREF INTO DELTOID REGION
     Dates: start: 20220826
  37. LINAGLIPTIN [Concomitant]
     Active Substance: LINAGLIPTIN
     Dosage: 1 TABLET DAILY
     Dates: start: 20231214
  38. LINAGLIPTIN [Concomitant]
     Active Substance: LINAGLIPTIN
     Dosage: 1 TABLET DAILY
     Dates: start: 20231212
  39. NITROFURANTOIN [Concomitant]
     Active Substance: NITROFURANTOIN
     Dosage: 1 CAPSULE DAILY TAKE WITH FOOD OR MILK. ADULTS: 50-100 MG 4 TIMES/DAY; MAX 400 MG/DAY; 1 WEEK
     Dates: start: 20231214
  40. LEVOTHYROXINE [Concomitant]
     Active Substance: LEVOTHYROXINE
     Dosage: 1 TABLET IN THE MORNING ; 1 TABLET IN THE MORNING ON AN EMPTY STOMACH
     Dates: start: 20240621
  41. LEVOTHYROXINE [Concomitant]
     Active Substance: LEVOTHYROXINE
     Dosage: 1 TABLET DAILY; 01/10/2024 1 TABLET DAILY
  42. CEPHALEXIN [Concomitant]
     Active Substance: CEPHALEXIN
     Dosage: 1 CAPSULE EVERY 12 HOURS
     Dates: start: 20241017

REACTIONS (1)
  - Renal cancer [Recovered/Resolved]

NARRATIVE: CASE EVENT DATE: 20230911
